FAERS Safety Report 15486904 (Version 2)
Quarter: 2018Q4

REPORT INFORMATION
  Report Type: Spontaneous
  Country: BR (occurrence: BR)
  Receive Date: 20181011
  Receipt Date: 20181012
  Transmission Date: 20190205
  Serious: Yes (Other)
  Sender: FDA-Public Use
  Company Number: BR-ROCHE-2195205

PATIENT
  Sex: Female

DRUGS (6)
  1. COLIMYCIN [Concomitant]
     Active Substance: COLISTIMETHATE SODIUM
  2. PANCREATIC ENZYME [Concomitant]
  3. ADEKS [Concomitant]
  4. AZITHROMYCIN ANHYDROUS. [Concomitant]
     Active Substance: AZITHROMYCIN ANHYDROUS
     Route: 065
  5. TOBRAMYCIN. [Concomitant]
     Active Substance: TOBRAMYCIN
  6. PULMOZYME [Suspect]
     Active Substance: DORNASE ALFA
     Indication: CYSTIC FIBROSIS
     Route: 065

REACTIONS (2)
  - Serratia infection [Recovered/Resolved]
  - Urinary tract infection fungal [Recovered/Resolved]
